FAERS Safety Report 7161084-3 (Version None)
Quarter: 2010Q4

REPORT INFORMATION
  Report Type: 
  Country: None (occurrence: None)
  Receive Date: 20101215
  Receipt Date: 20101206
  Transmission Date: 20110411
  Serious: Yes (Hospitalization)
  Sender: FDA-Public Use
  Company Number: US-BIOGENIDEC-2010BI040461

PATIENT
  Age: 55 Year
  Sex: Female
  Weight: 104 kg

DRUGS (20)
  1. TYSABRI [Suspect]
     Indication: MULTIPLE SCLEROSIS
     Route: 042
     Dates: start: 20101026
  2. HYZAAR [Concomitant]
  3. PROTONIX [Concomitant]
  4. AMBIEN [Concomitant]
  5. FLEXOR PAIN PATCH [Concomitant]
  6. VITAMIN B-12 [Concomitant]
  7. NAPROSYN [Concomitant]
  8. VIVELLE [Concomitant]
  9. DETROL LA [Concomitant]
  10. LASIX [Concomitant]
  11. VITAMIN D [Concomitant]
  12. SCOPOLAMINE [Concomitant]
  13. DRAMAMINE [Concomitant]
  14. MOTRIN [Concomitant]
  15. DARVOCET [Concomitant]
  16. CLARITIN [Concomitant]
  17. MUCINEX [Concomitant]
  18. SEREVENT [Concomitant]
  19. CORRECTOL [Concomitant]
  20. PEPTO-BISMOL [Concomitant]

REACTIONS (4)
  - DYSURIA [None]
  - HERPES ZOSTER [None]
  - IRRITABLE BOWEL SYNDROME [None]
  - POOR VENOUS ACCESS [None]
